FAERS Safety Report 8163188-5 (Version None)
Quarter: 2012Q1

REPORT INFORMATION
  Report Type: 
  Country: None (occurrence: None)
  Receive Date: 20120224
  Receipt Date: 20110708
  Transmission Date: 20120608
  Serious: No
  Sender: FDA-Public Use
  Company Number: US-PFIZER INC-K201100796

PATIENT
  Age: 60 Year
  Sex: Female
  Weight: 75.283 kg

DRUGS (1)
  1. FLECTOR [Suspect]
     Indication: BACK PAIN
     Dosage: 0.5 PATCH, BID
     Route: 061
     Dates: start: 20110705, end: 20110708

REACTIONS (4)
  - PSYCHOMOTOR HYPERACTIVITY [None]
  - ERYTHEMA [None]
  - DIZZINESS [None]
  - URTICARIA [None]
